FAERS Safety Report 23092142 (Version 1)
Quarter: 2023Q4

REPORT INFORMATION
  Report Type: Spontaneous
  Country: JP (occurrence: JP)
  Receive Date: 20231021
  Receipt Date: 20231021
  Transmission Date: 20240110
  Serious: Yes (Other)
  Sender: FDA-Public Use
  Company Number: JP-JNJFOC-20191015779

PATIENT

DRUGS (1)
  1. IMBRUVICA [Suspect]
     Active Substance: IBRUTINIB
     Indication: Product used for unknown indication
     Dosage: IBRUTINIB:140MG
     Route: 048

REACTIONS (4)
  - Gastrointestinal haemorrhage [Unknown]
  - Neutrophil count decreased [Unknown]
  - Pneumonia [Unknown]
  - Atrial fibrillation [Unknown]
